FAERS Safety Report 21906495 (Version 1)
Quarter: 2023Q1

REPORT INFORMATION
  Report Type: Spontaneous
  Country: US (occurrence: None)
  Receive Date: 20230125
  Receipt Date: 20230125
  Transmission Date: 20230418
  Serious: Yes (Other)
  Sender: FDA-Public Use
  Company Number: US-ALVOGEN-2022-ALVOGEN-118155

PATIENT
  Age: 79 Year
  Sex: Female

DRUGS (4)
  1. OXYCODONE [Suspect]
     Active Substance: OXYCODONE
     Indication: Pain
     Dosage: 20 MG EVERY 12 HOURS
  2. TRAMADOL [Suspect]
     Active Substance: TRAMADOL
     Indication: Pain
     Dosage: TWICE DAILY
  3. TRAZODONE [Suspect]
     Active Substance: TRAZODONE HYDROCHLORIDE
     Indication: Major depression
     Dosage: BED TIME
  4. CITALOPRAM [Suspect]
     Active Substance: CITALOPRAM HYDROBROMIDE
     Indication: Major depression
     Dosage: DAILY

REACTIONS (9)
  - Serotonin syndrome [Unknown]
  - Asthenia [Unknown]
  - Tremor [Unknown]
  - Mental status changes [Unknown]
  - Hallucinations, mixed [Unknown]
  - Pyrexia [Unknown]
  - Tachypnoea [Unknown]
  - Tachycardia [Unknown]
  - Hyperhidrosis [Unknown]
